FAERS Safety Report 10211694 (Version 2)
Quarter: 2014Q2

REPORT INFORMATION
  Report Type: Spontaneous
  Country: US (occurrence: US)
  Receive Date: 20140602
  Receipt Date: 20140606
  Transmission Date: 20141212
  Serious: Yes (Other)
  Sender: FDA-Public Use
  Company Number: US-GILEAD-2014-0103841

PATIENT
  Age: 81 Year
  Sex: Male

DRUGS (1)
  1. RANEXA [Suspect]
     Indication: DIZZINESS
     Dosage: 500 MG, BID
     Route: 065
     Dates: start: 2014

REACTIONS (4)
  - Dementia [Unknown]
  - Hypersomnia [Unknown]
  - Memory impairment [Unknown]
  - Communication disorder [Unknown]
